FAERS Safety Report 10357837 (Version 8)
Quarter: 2014Q4

REPORT INFORMATION
  Report Type: Report from Study
  Country: ES (occurrence: ES)
  Receive Date: 20140801
  Receipt Date: 20141105
  Transmission Date: 20150528
  Serious: Yes (Hospitalization, Other)
  Sender: FDA-Public Use
  Company Number: ES-B.I. PHARMACEUTICALS,INC./RIDGEFIELD-2014-BI-33168BI

PATIENT
  Age: 71 Year
  Sex: Female
  Weight: 103.2 kg

DRUGS (16)
  1. BUNESONIDE + FORNOTEROL [Concomitant]
     Indication: SLEEP APNOEA SYNDROME
     Dosage: DAILY DOSE: 4 INHALATION
     Route: 055
     Dates: start: 20060307
  2. DILTIAZEM HYDROCHLORIDE. [Concomitant]
     Active Substance: DILTIAZEM HYDROCHLORIDE
     Indication: CARDIAC FAILURE
     Dosage: 180 MG
     Route: 048
     Dates: start: 201108, end: 20140801
  3. FLECAINIDE ACETATE. [Concomitant]
     Active Substance: FLECAINIDE ACETATE
     Indication: ATRIAL FIBRILLATION
     Dosage: 200 MG
     Route: 048
     Dates: start: 20080201, end: 20140801
  4. BI 1356 [Suspect]
     Active Substance: LINAGLIPTIN
     Indication: TYPE 2 DIABETES MELLITUS
     Dosage: STRENGTH: 5MG/4MG DAILY DOSE: ONCE
     Route: 048
     Dates: start: 20120309, end: 20140717
  5. BI 1356 [Suspect]
     Active Substance: LINAGLIPTIN
     Dosage: 5 MG
     Route: 048
     Dates: start: 20140718
  6. SIMVASTATIN. [Concomitant]
     Active Substance: SIMVASTATIN
     Indication: HYPERCHOLESTEROLAEMIA
     Dosage: 40 MG
     Route: 048
     Dates: start: 20021113, end: 20140718
  7. FUROSEMIDE. [Concomitant]
     Active Substance: FUROSEMIDE
     Dosage: 80 MG
     Route: 048
     Dates: start: 20140801
  8. FUROSEMIDE. [Concomitant]
     Active Substance: FUROSEMIDE
     Indication: CARDIAC FAILURE
     Dosage: 40 MG
     Route: 048
     Dates: start: 20140516, end: 20140801
  9. LISINOPRIL. [Concomitant]
     Active Substance: LISINOPRIL
     Dosage: 10 MG
     Route: 048
     Dates: start: 20140801
  10. BISOPROLOL [Concomitant]
     Active Substance: BISOPROLOL
     Indication: CARDIAC FAILURE
     Dosage: 2.5 MG
     Route: 048
     Dates: start: 20140801, end: 20140811
  11. LISINOPRIL. [Concomitant]
     Active Substance: LISINOPRIL
     Indication: HYPERTENSION
     Dosage: 20 MG
     Route: 048
     Dates: start: 20110602, end: 20140718
  12. SPIRONOLACTONE. [Concomitant]
     Active Substance: SPIRONOLACTONE
     Indication: CARDIAC FAILURE
     Dosage: 25 MG
     Route: 048
     Dates: start: 201108, end: 20140718
  13. ATORVASTATIN [Concomitant]
     Active Substance: ATORVASTATIN
     Indication: HYPERCHOLESTEROLAEMIA
     Dosage: 20 MG
     Route: 048
     Dates: start: 20140722
  14. ACENOCUMAROL [Concomitant]
     Active Substance: ACENOCOUMAROL
     Indication: ATRIAL FIBRILLATION
     Dosage: 4 MG
     Route: 048
     Dates: start: 20050607
  15. METFORMIN [Concomitant]
     Active Substance: METFORMIN HYDROCHLORIDE
     Indication: TYPE 2 DIABETES MELLITUS
     Dosage: 1275 MG
     Route: 048
     Dates: start: 20121118, end: 20140717
  16. CPAP [Concomitant]
     Active Substance: DEVICE
     Indication: SLEEP APNOEA SYNDROME
     Route: 065
     Dates: start: 20060307

REACTIONS (3)
  - Cardiac failure [Recovered/Resolved]
  - Chronic kidney disease [Recovered/Resolved]
  - Chronic kidney disease [Recovered/Resolved]

NARRATIVE: CASE EVENT DATE: 20120702
